FAERS Safety Report 16244226 (Version 2)
Quarter: 2019Q2

REPORT INFORMATION
  Report Type: Spontaneous
  Country: GB (occurrence: GB)
  Receive Date: 20190426
  Receipt Date: 20190611
  Transmission Date: 20190711
  Serious: Yes (Disabling, Congenital Anomaly, Other)
  Sender: FDA-Public Use
  Company Number: GB-MYLANLABS-2019M1038039

PATIENT
  Sex: Male
  Weight: 3.2 kg

DRUGS (5)
  1. NIFEDIPINE. [Concomitant]
     Active Substance: NIFEDIPINE
     Indication: BLOOD PRESSURE INCREASED
     Dosage: 10 MILLIGRAM, TAKEN DURING LABOUR
     Route: 064
  2. LABETALOL [Suspect]
     Active Substance: LABETALOL\LABETALOL HYDROCHLORIDE
     Indication: GESTATIONAL HYPERTENSION
     Dosage: UNK UNK, TID(GRADUALLY INCREASING UP TO 300MG 3 TIMES PER DAY)
     Route: 064
     Dates: start: 20180311, end: 20181002
  3. FOLIC ACID. [Concomitant]
     Active Substance: FOLIC ACID
     Dosage: 50 MILLIGRAM, TAKEN THROUGHOUT PREGNANCY
     Route: 064
  4. VITAMIN D                          /07503901/ [Concomitant]
     Active Substance: VITAMIN D NOS
     Dosage: UNK
     Route: 064
  5. THYROXINE [Concomitant]
     Active Substance: LEVOTHYROXINE
     Route: 064

REACTIONS (5)
  - Sepsis neonatal [Unknown]
  - Hypospadias [Not Recovered/Not Resolved]
  - Jaundice neonatal [Unknown]
  - Infection [Unknown]
  - Foetal exposure during pregnancy [Recovered/Resolved]
